FAERS Safety Report 8423785-6 (Version None)
Quarter: 2012Q2

REPORT INFORMATION
  Report Type: 
  Country: None (occurrence: None)
  Receive Date: 20120608
  Receipt Date: 20120524
  Transmission Date: 20120825
  Serious: Yes (Other)
  Sender: FDA-Public Use
  Company Number: CHPA2012CA011891

PATIENT
  Age: 78 Year
  Sex: Female

DRUGS (4)
  1. NEXIUM [Concomitant]
     Indication: DYSPEPSIA
     Dosage: UNK, QAM
  2. MAALOX ANTACID WITH ANTI-GAS REGULAR [Suspect]
     Indication: GASTROOESOPHAGEAL REFLUX DISEASE
     Dosage: 3 TSP, QPM
     Route: 048
     Dates: end: 20120401
  3. MAALOX MULTI-ACTION [Suspect]
     Indication: GASTROOESOPHAGEAL REFLUX DISEASE
     Dosage: 3 TSP, QPM
     Route: 048
     Dates: end: 20120101
  4. AMPHOJEL [Concomitant]
     Indication: GASTROOESOPHAGEAL REFLUX DISEASE
     Dosage: UNK, UNK

REACTIONS (7)
  - INTESTINAL HAEMORRHAGE [None]
  - CONSTIPATION [None]
  - INCORRECT DRUG ADMINISTRATION DURATION [None]
  - ABDOMINAL PAIN UPPER [None]
  - DYSPEPSIA [None]
  - OFF LABEL USE [None]
  - FAECES DISCOLOURED [None]
